FAERS Safety Report 9107802 (Version 2)
Quarter: 2013Q1

REPORT INFORMATION
  Report Type: Spontaneous
  Country: JP (occurrence: JP)
  Receive Date: 20130221
  Receipt Date: 20130320
  Transmission Date: 20140127
  Serious: Yes (Death)
  Sender: FDA-Public Use
  Company Number: JP-MEDICIS-2013P1002427

PATIENT
  Age: 8 Year
  Sex: Female

DRUGS (1)
  1. BUPHENYL [Suspect]
     Indication: AMINO ACID METABOLISM DISORDER
     Route: 048
     Dates: start: 20130128, end: 20130208

REACTIONS (1)
  - Cerebral haemorrhage [Fatal]
